FAERS Safety Report 23222095 (Version 1)
Quarter: 2023Q4

REPORT INFORMATION
  Report Type: Spontaneous
  Country: JP (occurrence: JP)
  Receive Date: 20231123
  Receipt Date: 20231123
  Transmission Date: 20240110
  Serious: Yes (Other)
  Sender: FDA-Public Use
  Company Number: JP-ABBVIE-5483109

PATIENT
  Age: 70 Year
  Sex: Male

DRUGS (3)
  1. RINVOQ [Suspect]
     Active Substance: UPADACITINIB
     Indication: Rheumatoid arthritis
     Dosage: FORM STRENGTH WAS 7.5 MILLIGRAMS
     Route: 048
     Dates: start: 20210422
  2. ALFACALCIDOL [Concomitant]
     Active Substance: ALFACALCIDOL
     Indication: Product used for unknown indication
     Dosage: 0.5 MICROGRAM
     Dates: start: 20141218
  3. METHOTREXATE [Concomitant]
     Active Substance: METHOTREXATE
     Indication: Rheumatoid arthritis
     Dates: start: 20090202

REACTIONS (10)
  - Spinal osteoarthritis [Unknown]
  - Gait disturbance [Unknown]
  - Arthralgia [Unknown]
  - Spinal cord injury cervical [Unknown]
  - Fall [Unknown]
  - Asthenia [Unknown]
  - Excessive granulation tissue [Unknown]
  - Myelopathy [Unknown]
  - Hypoaesthesia [Unknown]
  - Muscular weakness [Unknown]

NARRATIVE: CASE EVENT DATE: 20221222
